FAERS Safety Report 17176811 (Version 1)
Quarter: 2019Q4

REPORT INFORMATION
  Report Type: Spontaneous
  Country: DE (occurrence: DE)
  Receive Date: 20191219
  Receipt Date: 20191219
  Transmission Date: 20200122
  Serious: Yes (Other)
  Sender: FDA-Public Use
  Company Number: DE-ASTRAZENECA-2019SF79857

PATIENT
  Sex: Female
  Weight: 81 kg

DRUGS (4)
  1. FLUOXETIN [Concomitant]
     Active Substance: FLUOXETINE HYDROCHLORIDE
  2. QUETIAPIN [Suspect]
     Active Substance: QUETIAPINE
     Indication: DEPRESSION
     Dosage: 200.0MG UNKNOWN
     Route: 048
     Dates: start: 20071001, end: 20190201
  3. L-THYROX [Concomitant]
     Active Substance: LEVOTHYROXINE SODIUM
  4. DOXEPIN [Concomitant]
     Active Substance: DOXEPIN
     Dosage: 50-100 MG

REACTIONS (9)
  - Dental plaque [Recovered/Resolved with Sequelae]
  - Aphasia [Recovered/Resolved]
  - Weight increased [Recovering/Resolving]
  - Salivary gland calculus [Recovered/Resolved with Sequelae]
  - Learning disorder [Recovered/Resolved]
  - Dry mouth [Recovered/Resolved with Sequelae]
  - Movement disorder [Recovered/Resolved]
  - Tooth loss [Recovered/Resolved with Sequelae]
  - Language disorder [Recovered/Resolved]

NARRATIVE: CASE EVENT DATE: 20071001
